FAERS Safety Report 4330917-8 (Version None)
Quarter: 2004Q1

REPORT INFORMATION
  Report Type: 
  Country: None (occurrence: None)
  Receive Date: 20040329
  Receipt Date: 20040317
  Transmission Date: 20041129
  Serious: Yes (Death)
  Sender: FDA-Public Use
  Company Number: US-JNJFOC-20040304121

PATIENT
  Age: 79 Year
  Sex: Male

DRUGS (1)
  1. DURAGESIC [Suspect]
     Indication: CANCER PAIN
     Dosage: 25 UG, 1 IN 72 HOUR, TRANSDERMAL
     Route: 062
     Dates: start: 20040119, end: 20040121

REACTIONS (2)
  - LYMPHOMA [None]
  - MYOCARDIAL INFARCTION [None]
